FAERS Safety Report 19792842 (Version 1)
Quarter: 2021Q3

REPORT INFORMATION
  Report Type: Spontaneous
  Country: TW (occurrence: TW)
  Receive Date: 20210906
  Receipt Date: 20210906
  Transmission Date: 20211014
  Serious: Yes (Other)
  Sender: FDA-Public Use
  Company Number: TW-PFIZER INC-202101086632

PATIENT
  Age: 81 Year
  Sex: Male

DRUGS (1)
  1. XELJANZ [Suspect]
     Active Substance: TOFACITINIB CITRATE
     Indication: RHEUMATOID ARTHRITIS
     Dosage: 5 MG, 2X/DAY
     Route: 048
     Dates: start: 20180723

REACTIONS (1)
  - Coronary artery occlusion [Not Recovered/Not Resolved]
